FAERS Safety Report 9245384 (Version 7)
Quarter: 2014Q2

REPORT INFORMATION
  Report Type: Spontaneous
  Country: US (occurrence: US)
  Receive Date: 20130422
  Receipt Date: 20140410
  Transmission Date: 20141212
  Serious: Yes (Hospitalization, Other)
  Sender: FDA-Public Use
  Company Number: US-PFIZER INC-2013122425

PATIENT
  Age: 60 Year
  Sex: Male

DRUGS (22)
  1. CLEOCIN [Suspect]
     Indication: CELLULITIS
     Dosage: UNK
     Route: 042
     Dates: start: 20120914
  2. CLEOCIN [Suspect]
     Indication: LYMPHANGITIS
  3. COUMADIN [Concomitant]
     Dosage: 3 MG, ALTERNATE DAY
     Route: 048
  4. JANUVIA [Concomitant]
     Indication: DIABETES MELLITUS
     Dosage: 25 MG, 1X/DAY
     Route: 048
  5. LYRICA [Concomitant]
     Indication: DIABETES MELLITUS
     Dosage: 50 MG, 3X/DAY
     Route: 048
  6. POTASSIUM [Concomitant]
     Dosage: UNK
  7. OMEPRAZOLE [Concomitant]
     Dosage: 20 MG DAILY
     Route: 048
  8. BENICAR [Concomitant]
     Dosage: 40 MG DAILY
     Route: 048
  9. PROCARDIA [Concomitant]
     Dosage: 30 MG DAILY
     Route: 048
  10. NIASPAN [Concomitant]
     Dosage: UNK
  11. METOPROLOL [Concomitant]
     Dosage: 100 MG DAILY
     Route: 048
  12. LISINOPRIL [Concomitant]
     Dosage: 400 MG DAILY
     Route: 048
  13. REVLIMID [Concomitant]
     Dosage: 10 MG, ALTERNATE DAY
     Route: 048
  14. LANTUS [Concomitant]
     Indication: DIABETES MELLITUS
     Dosage: 44 UNITS/ML ONCE DAILY
     Route: 058
  15. GLIMEPIRIDE [Concomitant]
     Dosage: 8 MG TWO TABLETS DAILY
     Route: 048
  16. LASIX [Concomitant]
     Dosage: UNK
  17. DOXAZOSIN [Concomitant]
     Dosage: 4 MG, 1X/DAY (EVERY NIGHT AT BEDTIME)
     Route: 048
  18. CLONIDINE [Concomitant]
     Dosage: 0.2 MG, 1X/DAY (EVERY NIGHT AT BEDTIME)
     Route: 048
  19. AMIODARONE [Concomitant]
     Dosage: 200 MG DAILY
     Route: 048
  20. ALLOPURINOL [Concomitant]
     Dosage: 100 MG DAILY
     Route: 048
  21. VANCOMYCIN [Concomitant]
     Indication: CELLULITIS
     Dosage: UNK
     Route: 042
     Dates: start: 201209
  22. LEVOFLOXACIN [Concomitant]
     Indication: CELLULITIS
     Dosage: UNK
     Route: 042
     Dates: start: 201209

REACTIONS (2)
  - Stevens-Johnson syndrome [Unknown]
  - Toxic epidermal necrolysis [Unknown]
